FAERS Safety Report 18518773 (Version 1)
Quarter: 2020Q4

REPORT INFORMATION
  Report Type: Spontaneous
  Country: US (occurrence: US)
  Receive Date: 20201118
  Receipt Date: 20201118
  Transmission Date: 20210114
  Serious: No
  Sender: FDA-Public Use
  Company Number: US-FRESENIUS KABI-FK202010164

PATIENT
  Sex: Male

DRUGS (1)
  1. LEVOTHYROXINE SODIUM FOR INJECTION [Suspect]
     Active Substance: LEVOTHYROXINE SODIUM
     Indication: PRODUCT USED FOR UNKNOWN INDICATION
     Dosage: UNKNOWN
     Route: 065

REACTIONS (3)
  - Feeling abnormal [Unknown]
  - Product dose omission issue [Unknown]
  - No adverse event [Unknown]
